FAERS Safety Report 6733359-0 (Version None)
Quarter: 2010Q2

REPORT INFORMATION
  Report Type: 
  Country: None (occurrence: None)
  Receive Date: 20100520
  Receipt Date: 20100512
  Transmission Date: 20101027
  Serious: Yes (Other)
  Sender: FDA-Public Use
  Company Number: GB-PFIZER INC-2010059559

PATIENT
  Age: 76 Year
  Sex: Female
  Weight: 76 kg

DRUGS (4)
  1. DEPO-MEDROL [Suspect]
     Dosage: 80 MG, UNK
     Route: 013
     Dates: start: 20100428
  2. MARCAINE [Suspect]
     Indication: ARTHRALGIA
     Dosage: 10 ML, UNK
     Route: 013
     Dates: start: 20100428
  3. CELEBREX [Concomitant]
     Indication: OSTEOARTHRITIS
     Dosage: 100 MG, UNK
     Route: 048
  4. LEVOTHYROXINE SODIUM [Concomitant]
     Indication: HYPOTHYROIDISM
     Dosage: 125 UG, UNK
     Route: 048

REACTIONS (6)
  - ABDOMINAL PAIN [None]
  - ALTERED STATE OF CONSCIOUSNESS [None]
  - HYPERSENSITIVITY [None]
  - HYPOTENSION [None]
  - PAIN [None]
  - RASH [None]
